FAERS Safety Report 8477132 (Version 10)
Quarter: 2014Q3

REPORT INFORMATION
  Report Type: Spontaneous
  Country: US (occurrence: US)
  Receive Date: 20120326
  Receipt Date: 20140707
  Transmission Date: 20150326
  Serious: Yes (Hospitalization, Other)
  Sender: FDA-Public Use
  Company Number: US-MERCK-1203USA02827

PATIENT
  Sex: Female
  Weight: 61.22 kg

DRUGS (3)
  1. ALENDRONATE SODIUM. [Suspect]
     Active Substance: ALENDRONATE SODIUM
     Dosage: 70 MG, UNK
     Route: 048
     Dates: end: 201004
  2. FOSAMAX [Suspect]
     Active Substance: ALENDRONATE SODIUM
     Indication: OSTEOPENIA
     Dosage: 70 MG WEEKLY
     Route: 048
     Dates: end: 20100330
  3. FOSAMAX [Suspect]
     Active Substance: ALENDRONATE SODIUM
     Indication: OSTEOPOROSIS
     Dosage: 10 MG, QD
     Route: 048
     Dates: start: 20000808

REACTIONS (14)
  - Hip fracture [Unknown]
  - Intramedullary rod insertion [Unknown]
  - Exostosis [Unknown]
  - Arthritis [Unknown]
  - Surgery [Unknown]
  - Peripheral swelling [Unknown]
  - Asthma [Not Recovered/Not Resolved]
  - Tonsillectomy [Unknown]
  - Foot fracture [Recovering/Resolving]
  - Gastrooesophageal reflux disease [Not Recovered/Not Resolved]
  - Peripheral nerve lesion [Not Recovered/Not Resolved]
  - Foot fracture [Unknown]
  - Foot fracture [Unknown]
  - Anaemia [Unknown]

NARRATIVE: CASE EVENT DATE: 20070824
